FAERS Safety Report 7731073-6 (Version None)
Quarter: 2011Q3

REPORT INFORMATION
  Report Type: 
  Country: None (occurrence: None)
  Receive Date: 20110906
  Receipt Date: 20110906
  Transmission Date: 20111222
  Serious: Yes (Other)
  Sender: FDA-Public Use
  Company Number: None

PATIENT
  Age: 26 Year
  Sex: Female
  Weight: 54.431 kg

DRUGS (2)
  1. METROGEL-VAGINAL [Concomitant]
     Dosage: ONE APPLICATOR FULL
     Route: 067
     Dates: start: 20090710, end: 20090715
  2. METROGEL-VAGINAL [Suspect]
     Indication: VAGINITIS BACTERIAL
     Dosage: ONE APPLICATOR FULL
     Route: 067
     Dates: start: 20090501, end: 20090506

REACTIONS (4)
  - DISEASE RECURRENCE [None]
  - VAGINITIS BACTERIAL [None]
  - HYPOAESTHESIA [None]
  - CONDITION AGGRAVATED [None]
